FAERS Safety Report 15385028 (Version 1)
Quarter: 2018Q3

REPORT INFORMATION
  Report Type: Spontaneous
  Country: US (occurrence: US)
  Receive Date: 20180914
  Receipt Date: 20180914
  Transmission Date: 20181010
  Serious: Yes (Other)
  Sender: FDA-Public Use
  Company Number: US-PFIZER INC-2018369020

PATIENT
  Age: 36 Year
  Sex: Male
  Weight: 64.41 kg

DRUGS (3)
  1. MOTRIN [Concomitant]
     Active Substance: IBUPROFEN
     Indication: PAIN
     Dosage: 800 MG, 2X/DAY (800 MG, CAPSULE, TWICE, ONCE IN THE MORNING AND ONCE AT NIGHT)
  2. VIAGRA [Suspect]
     Active Substance: SILDENAFIL CITRATE
     Indication: ERECTILE DYSFUNCTION
     Dosage: FOUR TABLETS OF 100 MG FOUR TO FIVE TIMES A DAY
     Dates: start: 20180827
  3. MARIJUANA [Concomitant]
     Active Substance: CANNABIS SATIVA SUBSP. INDICA TOP
     Dosage: UNK

REACTIONS (2)
  - Accidental overdose [Unknown]
  - Erection increased [Unknown]

NARRATIVE: CASE EVENT DATE: 2018
